FAERS Safety Report 7914899-5 (Version None)
Quarter: 2011Q4

REPORT INFORMATION
  Report Type: 
  Country: None (occurrence: None)
  Receive Date: 20111115
  Receipt Date: 20111108
  Transmission Date: 20120403
  Serious: Yes (Other)
  Sender: FDA-Public Use
  Company Number: US-SANOFI-AVENTIS-2011SA074083

PATIENT
  Age: 86 Year
  Sex: Female

DRUGS (2)
  1. LANTUS [Suspect]
     Dosage: DOSE:36 UNIT(S)
     Route: 058
     Dates: start: 20050101
  2. SOLOSTAR [Suspect]

REACTIONS (4)
  - HALLUCINATION [None]
  - ABDOMINAL PAIN UPPER [None]
  - HYPERGLYCAEMIA [None]
  - PYREXIA [None]
